FAERS Safety Report 20006776 (Version 9)
Quarter: 2024Q3

REPORT INFORMATION
  Report Type: Report from Study
  Country: US (occurrence: US)
  Receive Date: 20211028
  Receipt Date: 20240925
  Transmission Date: 20241017
  Serious: Yes (Other)
  Sender: GLAXOSMITHKLINE
  Company Number: US-GLAXOSMITHKLINE-US2021AMR220167

PATIENT
  Age: 63 Year
  Sex: Female
  Weight: 73.923 kg

DRUGS (3)
  1. NIRAPARIB [Suspect]
     Active Substance: NIRAPARIB
     Indication: Ovarian cancer
     Dosage: 200 MG, QD N MONDAY, WEDNESDAY, FRIDAY
     Dates: start: 202004, end: 202006
  2. NIRAPARIB [Suspect]
     Active Substance: NIRAPARIB
     Dosage: UNK (100 MG TUE,THU,SAT, SUN) 200 MG (MON, WED, FRI) DAILY
     Dates: start: 202007
  3. NIRAPARIB [Suspect]
     Active Substance: NIRAPARIB
     Dosage: 100MG DAILY ON TUESDAY, THURSDAY, SATURDAY, SUNDAY AND 200MG DAILY ON MONDAY, WEDNESDAY, FRIDAY
     Dates: start: 20211019, end: 20220424

REACTIONS (11)
  - Thrombocytopenia [Recovered/Resolved]
  - Fatigue [Not Recovered/Not Resolved]
  - Nausea [Not Recovered/Not Resolved]
  - Lung opacity [Not Recovered/Not Resolved]
  - Condition aggravated [Not Recovered/Not Resolved]
  - Insomnia [Not Recovered/Not Resolved]
  - Abdominal pain lower [Recovered/Resolved]
  - Inflammation [Unknown]
  - Arthralgia [Not Recovered/Not Resolved]
  - Inappropriate schedule of product administration [Unknown]
  - Off label use [Not Recovered/Not Resolved]

NARRATIVE: CASE EVENT DATE: 20200601
